FAERS Safety Report 13862831 (Version 2)
Quarter: 2017Q4

REPORT INFORMATION
  Report Type: Spontaneous
  Country: US (occurrence: US)
  Receive Date: 20170814
  Receipt Date: 20171113
  Transmission Date: 20180320
  Serious: No
  Sender: FDA-Public Use
  Company Number: US-TEVA-778338ACC

PATIENT

DRUGS (2)
  1. CELECOXIB. [Suspect]
     Active Substance: CELECOXIB
     Indication: ARTHRITIS
     Route: 065
     Dates: start: 20160129, end: 20160208
  2. CELECOXIB. [Suspect]
     Active Substance: CELECOXIB
     Indication: TENDONITIS

REACTIONS (2)
  - Drug dispensing error [Unknown]
  - Drug ineffective [Unknown]

NARRATIVE: CASE EVENT DATE: 20160129
